FAERS Safety Report 12896612 (Version 1)
Quarter: 2016Q4

REPORT INFORMATION
  Report Type: Spontaneous
  Country: US (occurrence: US)
  Receive Date: 20161028
  Receipt Date: 20161028
  Transmission Date: 20170207
  Serious: Yes (Hospitalization)
  Sender: FDA-Public Use
  Company Number: None

PATIENT
  Age: 30 Year
  Sex: Female
  Weight: 92.25 kg

DRUGS (6)
  1. ATIVAN [Concomitant]
     Active Substance: LORAZEPAM
  2. PRISTIQ EXTENDED-RELEASE [Concomitant]
     Active Substance: DESVENLAFAXINE SUCCINATE
  3. AMBIEN [Concomitant]
     Active Substance: ZOLPIDEM TARTRATE
  4. BENZOTROPINE [Suspect]
     Active Substance: BENZTROPINE
     Indication: ADVERSE DRUG REACTION
     Dosage: ?          QUANTITY:2 TABLET(S);?
     Route: 048
     Dates: start: 20161023, end: 20161028
  5. COGENTIN [Concomitant]
     Active Substance: BENZTROPINE MESYLATE
  6. FANAPT [Concomitant]
     Active Substance: ILOPERIDONE

REACTIONS (19)
  - Amnesia [None]
  - Anxiety [None]
  - Confusional state [None]
  - Decreased appetite [None]
  - Dyspnoea [None]
  - Angina pectoris [None]
  - Rash [None]
  - Feeling abnormal [None]
  - Musculoskeletal stiffness [None]
  - Cognitive disorder [None]
  - Heart rate increased [None]
  - Blood pressure increased [None]
  - Restlessness [None]
  - Swelling [None]
  - Speech disorder [None]
  - Formication [None]
  - Feeling hot [None]
  - Dysphagia [None]
  - Activities of daily living impaired [None]

NARRATIVE: CASE EVENT DATE: 20161023
